FAERS Safety Report 17427180 (Version 1)
Quarter: 2020Q1

REPORT INFORMATION
  Report Type: Spontaneous
  Country: FR (occurrence: FR)
  Receive Date: 20200218
  Receipt Date: 20200218
  Transmission Date: 20200409
  Serious: Yes (Hospitalization)
  Sender: FDA-Public Use
  Company Number: FR-ROCHE-2550021

PATIENT
  Age: 62 Year
  Sex: Male
  Weight: 74.3 kg

DRUGS (4)
  1. PROFENID [Suspect]
     Active Substance: KETOPROFEN
     Indication: MYALGIA
     Route: 030
     Dates: start: 20191211, end: 20191214
  2. VALIUM [Suspect]
     Active Substance: DIAZEPAM
     Indication: MYALGIA
     Route: 048
     Dates: start: 20191206, end: 20191212
  3. PROFENID [Suspect]
     Active Substance: KETOPROFEN
     Indication: MYALGIA
     Route: 030
     Dates: start: 20191206, end: 20191210
  4. VALIUM [Suspect]
     Active Substance: DIAZEPAM
     Indication: MYALGIA
     Route: 048
     Dates: start: 20191212, end: 20191213

REACTIONS (1)
  - Toxic skin eruption [Recovered/Resolved]

NARRATIVE: CASE EVENT DATE: 20191220
